FAERS Safety Report 9995186 (Version 1)
Quarter: 2014Q1

REPORT INFORMATION
  Report Type: Spontaneous
  Country: US (occurrence: None)
  Receive Date: 20140214
  Receipt Date: 20140214
  Transmission Date: 20141002
  Serious: No
  Sender: FDA-Public Use
  Company Number: US-014295

PATIENT
  Sex: Female

DRUGS (3)
  1. PICO-SALAX (NOT SPECIFIED) [Suspect]
     Indication: BOWEL PREPARATION
     Dosage: FIRST DOSE: 5:00 PM; SECOND DOSE: 9:00 PM ORAL)
     Route: 048
     Dates: start: 20140102, end: 20140102
  2. ASACOL [Concomitant]
  3. PROZAC [Concomitant]

REACTIONS (1)
  - Drug ineffective [None]
